FAERS Safety Report 11693320 (Version 1)
Quarter: 2015Q4

REPORT INFORMATION
  Report Type: Spontaneous
  Country: US (occurrence: None)
  Receive Date: 20151102
  Receipt Date: 20151102
  Transmission Date: 20160304
  Serious: No
  Sender: FDA-Public Use
  Company Number: None

PATIENT
  Age: 53 Year
  Sex: Male
  Weight: 81.65 kg

DRUGS (1)
  1. ARTICAINE [Suspect]
     Active Substance: ARTICAINE
     Indication: DENTAL IMPLANTATION

REACTIONS (5)
  - Pain [None]
  - Sensory disturbance [None]
  - Tongue disorder [None]
  - Paraesthesia [None]
  - Nerve injury [None]

NARRATIVE: CASE EVENT DATE: 20141009
